FAERS Safety Report 14300510 (Version 1)
Quarter: 2017Q4

REPORT INFORMATION
  Report Type: Other
  Country: CA (occurrence: CA)
  Receive Date: 20171219
  Receipt Date: 20171219
  Transmission Date: 20180321
  Serious: Yes (Other)
  Sender: FDA-Public Use
  Company Number: CA-APOTEX-2017AP022515

PATIENT
  Sex: Female

DRUGS (3)
  1. FLORINEF ACETATE [Concomitant]
     Active Substance: FLUDROCORTISONE ACETATE
     Indication: PRODUCT USED FOR UNKNOWN INDICATION
     Dosage: UNK
     Route: 065
  2. CITALOPRAM [Suspect]
     Active Substance: CITALOPRAM HYDROBROMIDE
     Indication: DEPRESSION
     Dosage: UNK
     Route: 065
  3. APTIOM [Suspect]
     Active Substance: ESLICARBAZEPINE ACETATE
     Indication: SEIZURE
     Dosage: UNK
     Route: 065

REACTIONS (3)
  - Dry skin [Unknown]
  - Seizure [Unknown]
  - Hyponatraemia [Unknown]
